FAERS Safety Report 17103451 (Version 1)
Quarter: 2019Q4

REPORT INFORMATION
  Report Type: Spontaneous
  Country: NO (occurrence: NO)
  Receive Date: 20191203
  Receipt Date: 20191203
  Transmission Date: 20200122
  Serious: Yes (Hospitalization, Other)
  Sender: FDA-Public Use
  Company Number: NO-LUPIN PHARMACEUTICALS INC.-2019-07897

PATIENT
  Age: 21 Year
  Sex: Female

DRUGS (1)
  1. MISOPROSTOL TABLET [Suspect]
     Active Substance: MISOPROSTOL
     Indication: ABORTION INDUCED
     Dosage: 14 DOSAGE FORM, SINGLE
     Route: 065

REACTIONS (5)
  - Overdose [Unknown]
  - Pelvic pain [Unknown]
  - Off label use [Unknown]
  - Dizziness [Unknown]
  - Exposure during pregnancy [Unknown]
